FAERS Safety Report 7010452-9 (Version None)
Quarter: 2010Q3

REPORT INFORMATION
  Report Type: 
  Country: None (occurrence: None)
  Receive Date: 20100923
  Receipt Date: 20100915
  Transmission Date: 20110219
  Serious: Yes (Other)
  Sender: FDA-Public Use
  Company Number: DE-ABBOTT-10P-062-0671342-00

PATIENT
  Sex: Male
  Weight: 76 kg

DRUGS (5)
  1. HUMIRA [Suspect]
     Indication: ANKYLOSING SPONDYLITIS
     Route: 058
     Dates: start: 20100510
  2. HUMIRA [Suspect]
  3. INDOMETHACIN SODIUM [Concomitant]
     Indication: UVEITIS
     Route: 048
  4. INDOMETHACIN SODIUM [Concomitant]
  5. GABAPENTIN [Concomitant]
     Indication: PRODUCT USED FOR UNKNOWN INDICATION

REACTIONS (3)
  - DEPRESSION [None]
  - SENSORY DISTURBANCE [None]
  - SYRINGOMYELIA [None]
